FAERS Safety Report 9109690 (Version 1)
Quarter: 2013Q1

REPORT INFORMATION
  Report Type: Report from Study
  Country: ES (occurrence: ES)
  Receive Date: 20130222
  Receipt Date: 20130222
  Transmission Date: 20140127
  Serious: Yes (Death, Hospitalization)
  Sender: FDA-Public Use
  Company Number: ES-BRISTOL-MYERS SQUIBB COMPANY-16412652

PATIENT
  Age: 61 Year
  Sex: Female
  Weight: 99.8 kg

DRUGS (6)
  1. IPILIMUMAB [Suspect]
     Indication: MALIGNANT MELANOMA
     Dosage: START DATE OF LAST CYCLE:30JAN12,INTERR ON 21JAN12.FREQUENCY:C/3 WEEKS,LAST DOSE 998MG, DCD 26FEB12
     Route: 042
     Dates: start: 20120109, end: 20120130
  2. DEPRAX [Concomitant]
     Indication: DEPRESSION
     Route: 048
     Dates: start: 201112, end: 20120216
  3. ORFIDAL [Concomitant]
     Indication: DEPRESSION
     Route: 048
     Dates: start: 201111
  4. OMEPRAZOL [Concomitant]
     Indication: PROPHYLAXIS AGAINST GASTROINTESTINAL ULCER
     Route: 048
     Dates: start: 20120109, end: 20120216
  5. SERTRALINE [Concomitant]
     Indication: DEPRESSION
     Route: 048
     Dates: start: 20111226, end: 20120216
  6. TORASEMIDE [Concomitant]
     Indication: HYPERTENSION
     Route: 048
     Dates: start: 20120109, end: 20120216

REACTIONS (2)
  - Malignant neoplasm progression [Fatal]
  - Multi-organ failure [Fatal]
